FAERS Safety Report 25116691 (Version 1)
Quarter: 2025Q1

REPORT INFORMATION
  Report Type: Spontaneous
  Country: JP (occurrence: JP)
  Receive Date: 20250325
  Receipt Date: 20250325
  Transmission Date: 20250409
  Serious: Yes (Other)
  Sender: MERCK SHARP & DOHME LLC
  Company Number: JP-009507513-2267798

PATIENT
  Age: 77 Year
  Sex: Female
  Weight: 42 kg

DRUGS (5)
  1. PREVYMIS [Suspect]
     Active Substance: LETERMOVIR
     Indication: Antiviral prophylaxis
     Route: 048
  2. TACROLIMUS extended-release [Concomitant]
     Route: 048
  3. TACROLIMUS extended-release [Concomitant]
     Route: 048
  4. TACROLIMUS extended-release [Concomitant]
     Route: 048
  5. TACROLIMUS extended-release [Concomitant]
     Route: 048

REACTIONS (4)
  - Pancytopenia [Unknown]
  - Immunosuppressant drug level increased [Unknown]
  - Postoperative wound infection [Unknown]
  - Cellulitis [Unknown]
